FAERS Safety Report 24406204 (Version 4)
Quarter: 2025Q1

REPORT INFORMATION
  Report Type: Spontaneous
  Country: CA (occurrence: CA)
  Receive Date: 20241007
  Receipt Date: 20250328
  Transmission Date: 20250409
  Serious: Yes (Other)
  Sender: PFIZER
  Company Number: CA-PFIZER INC-202400268825

PATIENT
  Age: 63 Year
  Sex: Male

DRUGS (2)
  1. RITUXIMAB [Suspect]
     Active Substance: RITUXIMAB
     Indication: Granulomatosis with polyangiitis
  2. RITUXIMAB [Suspect]
     Active Substance: RITUXIMAB
     Indication: Granulomatosis with polyangiitis
     Route: 042

REACTIONS (9)
  - Drug ineffective [Recovered/Resolved]
  - Neuropathy peripheral [Recovered/Resolved]
  - Disease progression [Recovered/Resolved]
  - Immune system disorder [Recovered/Resolved]
  - Lyme disease [Recovered/Resolved]
  - Chronic sinusitis [Recovered/Resolved]
  - Demyelinating polyneuropathy [Recovered/Resolved]
  - Ill-defined disorder [Recovered/Resolved]
  - Neurosarcoidosis [Recovered/Resolved]
